FAERS Safety Report 6817595-0 (Version None)
Quarter: 2010Q3

REPORT INFORMATION
  Report Type: 
  Country: None (occurrence: None)
  Receive Date: 20100706
  Receipt Date: 20100622
  Transmission Date: 20110219
  Serious: Yes (Hospitalization)
  Sender: FDA-Public Use
  Company Number: PHHY2010TW15586

PATIENT
  Sex: Male

DRUGS (3)
  1. TASIGNA [Suspect]
     Indication: CHRONIC MYELOID LEUKAEMIA
     Dosage: 800 MG DAILY
     Route: 048
     Dates: end: 20091204
  2. TASIGNA [Suspect]
     Dosage: 800 MG DAILY
     Route: 048
     Dates: start: 20100301, end: 20100607
  3. CHEMOTHERAPEUTICS NOS [Concomitant]

REACTIONS (3)
  - BLOOD TEST ABNORMAL [None]
  - SYNCOPE [None]
  - WHITE BLOOD CELL COUNT ABNORMAL [None]
